FAERS Safety Report 21563460 (Version 25)
Quarter: 2024Q2

REPORT INFORMATION
  Report Type: Spontaneous
  Country: CA (occurrence: CA)
  Receive Date: 20221108
  Receipt Date: 20240610
  Transmission Date: 20240716
  Serious: Yes (Life-Threatening, Hospitalization, Other)
  Sender: FDA-Public Use
  Company Number: CA-CELLTRION INC.-2022CA011427

PATIENT

DRUGS (30)
  1. INFLECTRA [Suspect]
     Active Substance: INFLIXIMAB-DYYB
     Indication: Ankylosing spondylitis
     Dosage: 5 MG/KG, 0, 2, 6 THEN EVERY 8 WEEKS
     Route: 042
     Dates: start: 20220319
  2. INFLECTRA [Suspect]
     Active Substance: INFLIXIMAB-DYYB
     Indication: Crohn^s disease
     Dosage: 5 MG/KG, 0, 2, 6 THEN EVERY 8 WEEKS
     Route: 042
     Dates: start: 20220510
  3. INFLECTRA [Suspect]
     Active Substance: INFLIXIMAB-DYYB
     Dosage: 325 MG, 0, 2, 6 THEN EVERY 8 WEEKS (5 MG/KG)
     Route: 042
     Dates: start: 20220704
  4. INFLECTRA [Suspect]
     Active Substance: INFLIXIMAB-DYYB
     Dosage: 10 MG/KG, EVERY 4 WEEKS
     Route: 042
     Dates: start: 20220803
  5. INFLECTRA [Suspect]
     Active Substance: INFLIXIMAB-DYYB
     Dosage: 10 MG/KG, EVERY 4 WEEKS
     Route: 042
     Dates: start: 20220901
  6. INFLECTRA [Suspect]
     Active Substance: INFLIXIMAB-DYYB
     Dosage: 10 MG/KG, 0, 2, 6 THEN EVERY 4 WEEKS
     Route: 042
     Dates: start: 20220916
  7. INFLECTRA [Suspect]
     Active Substance: INFLIXIMAB-DYYB
     Dosage: 10 MG/KG, 0, 2, 6 THEN EVERY 4 WEEKS
     Route: 042
     Dates: start: 20220929
  8. INFLECTRA [Suspect]
     Active Substance: INFLIXIMAB-DYYB
     Dosage: 10 MG/KG, 0, 2, 6 THEN EVERY 4 WEEKS (RE-INDUCTION)
     Route: 042
     Dates: start: 20221027
  9. INFLECTRA [Suspect]
     Active Substance: INFLIXIMAB-DYYB
     Dosage: 10 MG/KG, 0, 2, 6 THEN EVERY 4 WEEKS (RE-INDUCTION)
     Route: 042
     Dates: start: 20221124
  10. INFLECTRA [Suspect]
     Active Substance: INFLIXIMAB-DYYB
     Dosage: 10 MG/KG, 0, 2, 6 THEN EVERY 4 WEEKS (RE-INDUCTION)
     Route: 042
     Dates: start: 20221223
  11. INFLECTRA [Suspect]
     Active Substance: INFLIXIMAB-DYYB
     Dosage: 10 MG/KG, 0, 2, 6 THEN EVERY 4 WEEKS (RE-INDUCTION)
     Route: 042
     Dates: start: 20230118
  12. INFLECTRA [Suspect]
     Active Substance: INFLIXIMAB-DYYB
     Dosage: 10 MG/KG, 0, 2, 6 WEEKS THEN EVERY 4 WEEKS (780 MG, EVERY 4 WEEKS)
     Route: 042
     Dates: start: 20230130
  13. INFLECTRA [Suspect]
     Active Substance: INFLIXIMAB-DYYB
     Dosage: 12.5 MG/KG, EVERY 4 WEEKS (987 MG) (1 DF)
     Route: 042
     Dates: start: 20230228
  14. INFLECTRA [Suspect]
     Active Substance: INFLIXIMAB-DYYB
     Dosage: 12.5 MG/KG, EVERY 4 WEEK (987 MG)
     Route: 042
     Dates: start: 20230330
  15. INFLECTRA [Suspect]
     Active Substance: INFLIXIMAB-DYYB
     Dosage: 12.5 MG/KG, EVERY 4 WEEKS (1000 MG)
     Route: 042
     Dates: start: 20230424
  16. INFLECTRA [Suspect]
     Active Substance: INFLIXIMAB-DYYB
     Dosage: 12.5 MG/KG, EVERY 4 WEEKS (1075 MG)
     Route: 042
     Dates: start: 20230524
  17. INFLECTRA [Suspect]
     Active Substance: INFLIXIMAB-DYYB
     Dosage: 12.5 MG/KG, EVERY 4 WEEKS (1075 MG)
     Route: 042
     Dates: start: 20230524
  18. INFLECTRA [Suspect]
     Active Substance: INFLIXIMAB-DYYB
     Dosage: 12.5 MG/KG, EVERY 4 WEEKS (1112.5 MG)
     Route: 042
     Dates: start: 20230721
  19. INFLECTRA [Suspect]
     Active Substance: INFLIXIMAB-DYYB
     Dosage: 12.5 MG/KG, EVERY 4 WEEKS (1112.5 MG)
     Route: 042
     Dates: start: 20230721
  20. INFLECTRA [Suspect]
     Active Substance: INFLIXIMAB-DYYB
     Dosage: 12.5 MG/KG, EVERY 4 WEEKS (1112.5 MG)
     Route: 042
     Dates: start: 20230721
  21. INFLECTRA [Suspect]
     Active Substance: INFLIXIMAB-DYYB
     Dosage: 12.5 MG/KG, EVERY 4 WEEKS
     Route: 042
     Dates: start: 20230815
  22. INFLECTRA [Suspect]
     Active Substance: INFLIXIMAB-DYYB
     Dosage: 12.5 MG/KG, EVERY 4 WEEKS (1050 MG)
     Route: 042
     Dates: start: 20231011
  23. INFLECTRA [Suspect]
     Active Substance: INFLIXIMAB-DYYB
     Dosage: 12.5 MG/KG, EVERY 4 WEEKS (1050 MG)
     Route: 042
     Dates: start: 20231011
  24. INFLECTRA [Suspect]
     Active Substance: INFLIXIMAB-DYYB
     Dosage: 12.5 MG/KG, EVERY 4 WEEKS (1050 MG)
     Route: 042
     Dates: start: 20231109
  25. INFLECTRA [Suspect]
     Active Substance: INFLIXIMAB-DYYB
     Dosage: 12.5 MG/KG, EVERY 4 WEEKS
     Route: 042
     Dates: start: 20231206
  26. INFLECTRA [Suspect]
     Active Substance: INFLIXIMAB-DYYB
     Dosage: 12.5 MG/KG, EVERY 4 WEEKS (950 MG, AFTER 9 WEEKS AND 5 DAYS)
     Route: 042
     Dates: start: 20240212
  27. INFLECTRA [Suspect]
     Active Substance: INFLIXIMAB-DYYB
     Dosage: 12.5 MG/KG, EVERY 4 WEEKS (925 MG, AFTER 4 WEEKS AND 2 DAYS)
     Route: 042
     Dates: start: 20240313
  28. INFLECTRA [Suspect]
     Active Substance: INFLIXIMAB-DYYB
     Dosage: 12.5 MG/KG (925 MG), EVERY 4 WEEKS
     Route: 042
     Dates: start: 20240411
  29. INFLECTRA [Suspect]
     Active Substance: INFLIXIMAB-DYYB
     Dosage: 1 DF EVERY 4 WEEKS (12.5MG/KG)
     Route: 042
     Dates: start: 20240508
  30. INFLECTRA [Suspect]
     Active Substance: INFLIXIMAB-DYYB
     Dosage: 1 DF EVERY 4 WEEKS (913MG, 12.5MG/KG, EVERY 4 WEEKS )
     Route: 042
     Dates: start: 20240603

REACTIONS (37)
  - Pneumonia [Not Recovered/Not Resolved]
  - Pulmonary embolism [Not Recovered/Not Resolved]
  - Pneumonia [Recovered/Resolved]
  - Pneumonia [Recovering/Resolving]
  - Arthralgia [Recovered/Resolved]
  - Joint swelling [Not Recovered/Not Resolved]
  - Gastric ulcer [Recovered/Resolved]
  - Renal disorder [Unknown]
  - Lung disorder [Unknown]
  - Ligament sprain [Not Recovered/Not Resolved]
  - COVID-19 [Recovering/Resolving]
  - Thrombosis [Unknown]
  - Haemorrhage [Unknown]
  - Haemoglobin decreased [Recovered/Resolved]
  - Hypertension [Not Recovered/Not Resolved]
  - Gastric ulcer [Recovering/Resolving]
  - Therapeutic response shortened [Unknown]
  - Drug level decreased [Unknown]
  - Drug specific antibody present [Unknown]
  - Dyspnoea [Recovered/Resolved]
  - Visual impairment [Unknown]
  - C-reactive protein abnormal [Unknown]
  - Dyspnoea [Not Recovered/Not Resolved]
  - Oedema peripheral [Not Recovered/Not Resolved]
  - Weight increased [Not Recovered/Not Resolved]
  - Peripheral swelling [Not Recovered/Not Resolved]
  - Ear pain [Not Recovered/Not Resolved]
  - Oedema peripheral [Recovered/Resolved]
  - Arthritis [Not Recovered/Not Resolved]
  - Condition aggravated [Recovered/Resolved]
  - Stress [Recovering/Resolving]
  - Emotional disorder [Recovering/Resolving]
  - Infusion site discharge [Recovered/Resolved]
  - Pain [Recovering/Resolving]
  - Off label use [Unknown]
  - Off label use [Unknown]
  - Incorrect dose administered [Unknown]

NARRATIVE: CASE EVENT DATE: 20220101
